FAERS Safety Report 6371212-5 (Version None)
Quarter: 2009Q3

REPORT INFORMATION
  Report Type: 
  Country: None (occurrence: None)
  Receive Date: 20090923
  Receipt Date: 20070817
  Transmission Date: 20100115
  Serious: Yes (Other)
  Sender: FDA-Public Use
  Company Number: US-ASTRAZENECA-2006UW27656

PATIENT
  Age: 51 Year
  Sex: Female
  Weight: 126.6 kg

DRUGS (7)
  1. SEROQUEL [Suspect]
     Indication: BIPOLAR DISORDER
     Dosage: 25 MG TO 100 MG
     Route: 048
     Dates: start: 20000101, end: 20020801
  2. HALDOL [Concomitant]
  3. NAVANE [Concomitant]
  4. RISPERDAL [Concomitant]
     Dates: start: 20040108, end: 20051209
  5. VERAPAMIL [Concomitant]
     Dates: start: 20020605
  6. ZESTRIL [Concomitant]
     Dates: start: 20020605
  7. HYDROCHLOROTHIAZIDE [Concomitant]
     Dates: start: 20020605

REACTIONS (2)
  - DIABETES MELLITUS [None]
  - DIABETIC KETOACIDOSIS [None]
